FAERS Safety Report 6956691-4 (Version None)
Quarter: 2010Q3

REPORT INFORMATION
  Report Type: 
  Country: None (occurrence: None)
  Receive Date: 20100830
  Receipt Date: 20100812
  Transmission Date: 20110219
  Serious: Yes (Hospitalization)
  Sender: FDA-Public Use
  Company Number: AU-GENENTECH-305682

PATIENT
  Sex: Male
  Weight: 88.3 kg

DRUGS (1)
  1. RITUXIMAB [Suspect]
     Indication: THROMBOTIC THROMBOCYTOPENIC PURPURA
     Dosage: 800 MG, UNK
     Route: 065
     Dates: start: 20100804

REACTIONS (1)
  - FEBRILE NEUTROPENIA [None]
